FAERS Safety Report 15786036 (Version 2)
Quarter: 2019Q2

REPORT INFORMATION
  Report Type: Report from Study
  Country: US (occurrence: US)
  Receive Date: 20190103
  Receipt Date: 20190404
  Transmission Date: 20190711
  Serious: No
  Sender: FDA-Public Use
  Company Number: US-SA-2019SA001032

PATIENT
  Age: 54 Year
  Sex: Female

DRUGS (3)
  1. SARILUMAB [Suspect]
     Active Substance: SARILUMAB
     Indication: ARTHRITIS
  2. SARILUMAB [Suspect]
     Active Substance: SARILUMAB
     Indication: PSORIASIS
  3. SARILUMAB [Suspect]
     Active Substance: SARILUMAB
     Indication: RHEUMATOID ARTHRITIS
     Dosage: 200 MG, QOW
     Route: 058
     Dates: start: 20181207

REACTIONS (2)
  - Product use in unapproved indication [Unknown]
  - Drug ineffective [Not Recovered/Not Resolved]
